FAERS Safety Report 9429152 (Version 2)
Quarter: 2013Q3

REPORT INFORMATION
  Report Type: Spontaneous
  Country: IT (occurrence: FR)
  Receive Date: 20130730
  Receipt Date: 20130809
  Transmission Date: 20140515
  Serious: Yes (Hospitalization)
  Sender: FDA-Public Use
  Company Number: FR-FRI-1000047296

PATIENT
  Age: 66 Year
  Sex: Female

DRUGS (7)
  1. NEBIVOLOL [Suspect]
     Indication: HYPERTENSION
     Dosage: 5 MG
     Route: 048
  2. NEO-MERCAZOLE [Suspect]
     Indication: BASEDOW^S DISEASE
     Dosage: 10 MG
     Route: 048
     Dates: start: 2011
  3. NEO-MERCAZOLE [Suspect]
     Dosage: 5 MG
     Route: 048
     Dates: end: 2012
  4. NEO-MERCAZOLE [Suspect]
     Dosage: 10 MG
     Route: 048
     Dates: start: 2012, end: 201305
  5. TARDYFERON [Suspect]
     Indication: ANAEMIA
     Route: 048
  6. TANAKAN [Suspect]
     Indication: ARTERIAL DISORDER
     Route: 048
  7. CARDIOCALM [Suspect]
     Indication: ARRHYTHMIA
     Route: 048

REACTIONS (2)
  - Anaemia [Recovered/Resolved]
  - Neutropenia [Recovering/Resolving]
